FAERS Safety Report 24550125 (Version 1)
Quarter: 2024Q4

REPORT INFORMATION
  Report Type: Spontaneous
  Country: US (occurrence: US)
  Receive Date: 20241025
  Receipt Date: 20241025
  Transmission Date: 20250114
  Serious: No
  Sender: MERCK
  Company Number: US-009507513-2409USA009515

PATIENT
  Age: 57 Year
  Sex: Male

DRUGS (4)
  1. STROMECTOL [Suspect]
     Active Substance: IVERMECTIN
     Indication: Strongyloidiasis
     Dosage: UNK
     Route: 048
  2. STROMECTOL [Suspect]
     Active Substance: IVERMECTIN
     Indication: Meningitis enterococcal
  3. STROMECTOL [Suspect]
     Active Substance: IVERMECTIN
     Indication: Enterococcal gastroenteritis
  4. PREDNISONE [Concomitant]
     Active Substance: PREDNISONE
     Indication: Focal segmental glomerulosclerosis
     Dosage: UNK

REACTIONS (1)
  - Product use in unapproved indication [Unknown]
